FAERS Safety Report 10188132 (Version 1)
Quarter: 2014Q2

REPORT INFORMATION
  Report Type: Spontaneous
  Country: US (occurrence: US)
  Receive Date: 20140522
  Receipt Date: 20140522
  Transmission Date: 20141212
  Serious: No
  Sender: FDA-Public Use
  Company Number: US-SA-2013SA100702

PATIENT
  Age: 51 Year
  Sex: Male

DRUGS (4)
  1. LANTUS SOLOSTAR [Suspect]
     Indication: TYPE 2 DIABETES MELLITUS
     Dosage: START DATE - OVER A YEAR DOSE:60 UNIT(S)
     Route: 051
     Dates: start: 201201
  2. SOLOSTAR [Concomitant]
  3. NOVOLOG [Concomitant]
  4. ALL OTHER THERAPEUTIC PRODUCTS [Concomitant]

REACTIONS (3)
  - Pancreatic disorder [Unknown]
  - Abdominal tenderness [Unknown]
  - Injection site pain [Unknown]
